FAERS Safety Report 5655889-5 (Version None)
Quarter: 2008Q1

REPORT INFORMATION
  Report Type: 
  Country: None (occurrence: None)
  Receive Date: 20080307
  Receipt Date: 20080228
  Transmission Date: 20080703
  Serious: Yes (Hospitalization)
  Sender: FDA-Public Use
  Company Number: DE-ABBOTT-08P-062-0440405-00

PATIENT
  Sex: Female
  Weight: 72 kg

DRUGS (3)
  1. HUMIRA [Suspect]
     Indication: RHEUMATOID ARTHRITIS
     Route: 058
     Dates: start: 20040301
  2. SULFASALAZINE [Interacting]
     Indication: RHEUMATOID ARTHRITIS
     Route: 048
     Dates: start: 20040801
  3. PREDNISOLONE [Concomitant]
     Indication: RHEUMATOID ARTHRITIS
     Route: 048
     Dates: start: 20020101

REACTIONS (4)
  - DRUG INTERACTION [None]
  - HIP ARTHROPLASTY [None]
  - INFECTION [None]
  - PLEURAL INFECTION [None]
